FAERS Safety Report 8187571-7 (Version None)
Quarter: 2012Q1

REPORT INFORMATION
  Report Type: 
  Country: None (occurrence: None)
  Receive Date: 20120306
  Receipt Date: 20120229
  Transmission Date: 20120608
  Serious: Yes (Hospitalization)
  Sender: FDA-Public Use
  Company Number: PHHO2010FR18984

PATIENT
  Sex: Female
  Weight: 64 kg

DRUGS (3)
  1. PACLITAXEL [Suspect]
     Indication: BREAST CANCER METASTATIC
     Dosage: 80 MG/M2, UNK
     Route: 042
     Dates: start: 20101209, end: 20101216
  2. PLACEBO [Suspect]
     Indication: BREAST CANCER
     Dosage: 10 MG, DAILY
     Route: 048
     Dates: start: 20101209, end: 20101210
  3. COMPARATOR TRASTUZUMAB [Suspect]
     Indication: BREAST CANCER
     Dosage: 4 MG/KG, UNK
     Route: 042
     Dates: start: 20101209, end: 20101216

REACTIONS (4)
  - HYPERSENSITIVITY [None]
  - SENSATION OF HEAVINESS [None]
  - NERVOUS SYSTEM DISORDER [None]
  - CONCOMITANT DISEASE PROGRESSION [None]
